FAERS Safety Report 7859985-3 (Version None)
Quarter: 2011Q4

REPORT INFORMATION
  Report Type: 
  Country: None (occurrence: None)
  Receive Date: 20111026
  Receipt Date: 20111026
  Transmission Date: 20120403
  Serious: Yes (Death)
  Sender: FDA-Public Use
  Company Number: None

PATIENT
  Age: 66 Year
  Sex: Male

DRUGS (4)
  1. REVLIMID [Suspect]
     Indication: MULTIPLE MYELOMA
     Dosage: REVLIMID 15 MG DAILY X21D/28D ORALLY
     Route: 048
     Dates: start: 20071001, end: 20110501
  2. HYDROCODENE/APA [Concomitant]
  3. OMEPRAZOLE [Concomitant]
  4. GABAPENTIN [Concomitant]

REACTIONS (2)
  - CONDITION AGGRAVATED [None]
  - MULTIPLE MYELOMA [None]
